FAERS Safety Report 4801334-9 (Version None)
Quarter: 2005Q4

REPORT INFORMATION
  Report Type: 
  Country: None (occurrence: None)
  Receive Date: 20051017
  Receipt Date: 20050718
  Transmission Date: 20060501
  Serious: Yes (Hospitalization)
  Sender: FDA-Public Use
  Company Number: US-MERCK-0507USA02353

PATIENT
  Age: 55 Year
  Sex: Female
  Weight: 61 kg

DRUGS (7)
  1. VIOXX [Suspect]
     Indication: RHEUMATOID ARTHRITIS
     Route: 048
     Dates: start: 20010206, end: 20040712
  2. PREMARIN [Concomitant]
     Route: 065
  3. XANAX [Concomitant]
     Route: 065
  4. IBUPROFEN [Concomitant]
     Indication: RHEUMATOID ARTHRITIS
     Route: 065
     Dates: start: 20030101
  5. QUININE [Concomitant]
     Route: 065
  6. CELEBREX [Concomitant]
     Indication: RHEUMATOID ARTHRITIS
     Route: 065
     Dates: start: 20020901, end: 20021101
  7. BEXTRA [Concomitant]
     Indication: RHEUMATOID ARTHRITIS
     Route: 065
     Dates: start: 20020801, end: 20020801

REACTIONS (6)
  - BLOOD CHOLESTEROL INCREASED [None]
  - HYPERSENSITIVITY [None]
  - INFLUENZA [None]
  - MIGRAINE [None]
  - MYOCARDIAL INFARCTION [None]
  - SINUS DISORDER [None]
